FAERS Safety Report 24572462 (Version 1)
Quarter: 2024Q4

REPORT INFORMATION
  Report Type: Spontaneous
  Country: CA (occurrence: CA)
  Receive Date: 20241101
  Receipt Date: 20241101
  Transmission Date: 20250114
  Serious: Yes (Other)
  Sender: FERRING
  Company Number: CA-FERRINGPH-2021FE01703

PATIENT

DRUGS (12)
  1. FIRMAGON [Suspect]
     Active Substance: DEGARELIX ACETATE
     Indication: Prostate cancer metastatic
     Dosage: 80 MG, MONTHLY
     Route: 058
     Dates: start: 202011, end: 202011
  2. FIRMAGON [Suspect]
     Active Substance: DEGARELIX ACETATE
     Dosage: 240 MG, ONCE/SINGLE
     Route: 058
     Dates: start: 202010, end: 202010
  3. TESTOSTERONE [Suspect]
     Active Substance: TESTOSTERONE
     Indication: Product used for unknown indication
     Dosage: 100 ML
     Route: 065
     Dates: start: 2021
  4. ASPIRIN [Concomitant]
     Active Substance: ASPIRIN
     Indication: Product used for unknown indication
     Dosage: 81 MG
     Route: 065
  5. MIRTAZAPINE [Concomitant]
     Active Substance: MIRTAZAPINE
     Indication: Depression
     Dosage: 45 MG
     Route: 065
  6. CLONAZEPAM [Concomitant]
     Active Substance: CLONAZEPAM
     Indication: Product used for unknown indication
     Dosage: 0.5 MG, 2 TIMES DAILY
     Route: 065
     Dates: start: 2021, end: 202103
  7. VENLAFAXINE [Concomitant]
     Active Substance: VENLAFAXINE HYDROCHLORIDE
     Indication: Depression
     Dosage: 150 MG, DAILY
     Route: 065
     Dates: start: 2001
  8. SYNTHROID [Concomitant]
     Active Substance: LEVOTHYROXINE SODIUM
     Indication: Product used for unknown indication
     Dosage: 100 UG
     Route: 065
     Dates: start: 2020
  9. HYDROCHLOROTHIAZIDE [Concomitant]
     Active Substance: HYDROCHLOROTHIAZIDE
     Indication: Hypertension
     Dosage: 25 MG
     Route: 065
     Dates: start: 202012
  10. HYDROCHLOROTHIAZIDE [Concomitant]
     Active Substance: HYDROCHLOROTHIAZIDE
     Dosage: 12.5 MG
     Route: 065
  11. NAPROXEN [Concomitant]
     Active Substance: NAPROXEN
     Indication: Nerve injury
     Dosage: 500 MG
     Route: 065
     Dates: start: 2014
  12. THYROXINE [Concomitant]
     Active Substance: LEVOTHYROXINE
     Indication: Product used for unknown indication
     Dosage: 75 UG
     Route: 065
     Dates: start: 2017

REACTIONS (38)
  - Brain injury [Not Recovered/Not Resolved]
  - Ill-defined disorder [Unknown]
  - Dementia Alzheimer^s type [Unknown]
  - Monoplegia [Unknown]
  - Feelings of worthlessness [Not Recovered/Not Resolved]
  - General physical health deterioration [Not Recovered/Not Resolved]
  - Amnesia [Unknown]
  - Confusional state [Unknown]
  - Feeling drunk [Unknown]
  - Lethargy [Unknown]
  - Muscle fatigue [Not Recovered/Not Resolved]
  - Unevaluable event [Unknown]
  - Personality change [Unknown]
  - Tissue rupture [Unknown]
  - Mass [Not Recovered/Not Resolved]
  - Cold-stimulus headache [Not Recovered/Not Resolved]
  - Body temperature increased [Unknown]
  - Hallucination, visual [Unknown]
  - Hallucination, auditory [Unknown]
  - Prostatic specific antigen abnormal [Not Recovered/Not Resolved]
  - Muscle spasms [Recovered/Resolved]
  - Male sexual dysfunction [Unknown]
  - Myalgia [Recovered/Resolved]
  - Asthenia [Unknown]
  - Bone pain [Unknown]
  - Erythema [Not Recovered/Not Resolved]
  - Erythema [Not Recovered/Not Resolved]
  - Myalgia [Unknown]
  - Alopecia [Not Recovered/Not Resolved]
  - Hot flush [Recovering/Resolving]
  - Weight increased [Recovered/Resolved]
  - Fatigue [Not Recovered/Not Resolved]
  - Dizziness [Not Recovered/Not Resolved]
  - Insomnia [Not Recovered/Not Resolved]
  - Asthenia [Unknown]
  - Arthralgia [Recovered/Resolved]
  - Back pain [Not Recovered/Not Resolved]
  - Adverse drug reaction [Not Recovered/Not Resolved]

NARRATIVE: CASE EVENT DATE: 20200101
